FAERS Safety Report 8993425 (Version 2)
Quarter: 2013Q1

REPORT INFORMATION
  Report Type: Spontaneous
  Country: US (occurrence: US)
  Receive Date: 20130102
  Receipt Date: 20130318
  Transmission Date: 20140127
  Serious: Yes (Other)
  Sender: FDA-Public Use
  Company Number: US-PFIZER INC-2012328070

PATIENT
  Age: 46 Year
  Sex: Female
  Weight: 102 kg

DRUGS (2)
  1. VORICONAZOLE [Suspect]
     Indication: FUNGAL INFECTION
     Dosage: 300 MG IN THE MORNING AND 350 MG IN THE EVENING, 2X/DAY
     Dates: start: 20120324
  2. VORICONAZOLE [Suspect]
     Indication: MENINGITIS FUNGAL

REACTIONS (9)
  - Hallucinations, mixed [Unknown]
  - Liver disorder [Unknown]
  - Renal disorder [Unknown]
  - Blood magnesium decreased [Unknown]
  - Blood potassium decreased [Unknown]
  - Nausea [Unknown]
  - Visual impairment [Unknown]
  - Asthenia [Unknown]
  - Alopecia [Not Recovered/Not Resolved]
